FAERS Safety Report 7256766-9 (Version None)
Quarter: 2011Q1

REPORT INFORMATION
  Report Type: 
  Country: None (occurrence: None)
  Receive Date: 20110129
  Receipt Date: 20100712
  Transmission Date: 20110831
  Serious: Yes (Other)
  Sender: FDA-Public Use
  Company Number: US-ABBOTT-10P-163-0656888-00

PATIENT
  Weight: 59.02 kg

DRUGS (3)
  1. VICODIN [Concomitant]
     Indication: RHEUMATOID ARTHRITIS
  2. HUMIRA [Suspect]
     Indication: RHEUMATOID ARTHRITIS
     Dates: start: 20020101
  3. VICODIN [Concomitant]
     Indication: FIBROMYALGIA

REACTIONS (5)
  - RASH [None]
  - NEUROPATHY PERIPHERAL [None]
  - RESTLESS LEGS SYNDROME [None]
  - SYSTEMIC LUPUS ERYTHEMATOSUS [None]
  - ALCOHOL INTOLERANCE [None]
